FAERS Safety Report 4869578-8 (Version None)
Quarter: 2005Q4

REPORT INFORMATION
  Report Type: 
  Country: None (occurrence: None)
  Receive Date: 20051230
  Receipt Date: 20051228
  Transmission Date: 20060501
  Serious: Yes (Death)
  Sender: FDA-Public Use
  Company Number: US-SANOFI-SYNTHELABO-F01200502887

PATIENT
  Sex: Male

DRUGS (4)
  1. OXALIPLATIN [Suspect]
     Indication: COLORECTAL CANCER METASTATIC
     Dosage: UNKNOWN
  2. FLUOROURACIL [Suspect]
     Dosage: UNKNOWN
  3. FOLINIC ACID [Suspect]
     Dosage: UNKNOWN
  4. BEVACIZUMAB [Suspect]
     Dosage: DOSE NOT REPORTED
     Route: 042
     Dates: start: 20050907

REACTIONS (3)
  - DEATH [None]
  - LOSS OF CONSCIOUSNESS [None]
  - SHOCK [None]
